FAERS Safety Report 20209695 (Version 3)
Quarter: 2022Q1

REPORT INFORMATION
  Report Type: Report from Study
  Country: US (occurrence: US)
  Receive Date: 20211221
  Receipt Date: 20220219
  Transmission Date: 20220424
  Serious: Yes (Hospitalization, Other)
  Sender: FDA-Public Use
  Company Number: US-ABBVIE-21K-163-4205185-00

PATIENT
  Sex: Female

DRUGS (7)
  1. HUMIRA [Suspect]
     Active Substance: ADALIMUMAB
     Indication: Crohn^s disease
     Route: 058
     Dates: start: 2014
  2. HUMIRA [Suspect]
     Active Substance: ADALIMUMAB
     Indication: Colitis ulcerative
  3. HUMIRA [Suspect]
     Active Substance: ADALIMUMAB
     Indication: Colitis ulcerative
     Dosage: CITRATE FREE
     Route: 058
  4. COVID-19 VACCINE [Concomitant]
     Indication: COVID-19 immunisation
     Dosage: MODERNA
     Route: 014
     Dates: start: 20210210, end: 20210210
  5. COVID-19 VACCINE [Concomitant]
     Dosage: MODERNA
     Route: 014
     Dates: start: 20210312, end: 20210312
  6. PREDNISONE [Concomitant]
     Active Substance: PREDNISONE
     Indication: Product used for unknown indication
  7. LASIX [Concomitant]
     Active Substance: FUROSEMIDE
     Indication: Product used for unknown indication

REACTIONS (17)
  - Illness [Unknown]
  - Vascular calcification [Unknown]
  - Left atrial dilatation [Unknown]
  - Right atrial dilatation [Unknown]
  - Cardiomegaly [Unknown]
  - Oxygen saturation decreased [Recovering/Resolving]
  - Cough [Recovering/Resolving]
  - Pulmonary oedema [Recovered/Resolved]
  - Cardiac failure congestive [Unknown]
  - Coronary artery disease [Unknown]
  - Nasal discharge discolouration [Not Recovered/Not Resolved]
  - Paranasal sinus hypersecretion [Not Recovered/Not Resolved]
  - Intervertebral disc degeneration [Unknown]
  - Epistaxis [Not Recovered/Not Resolved]
  - Pleural effusion [Recovered/Resolved]
  - Sinusitis [Not Recovered/Not Resolved]
  - Asthma [Recovering/Resolving]

NARRATIVE: CASE EVENT DATE: 20170101
